FAERS Safety Report 11024687 (Version 1)
Quarter: 2015Q2

REPORT INFORMATION
  Report Type: Spontaneous
  Country: US (occurrence: None)
  Receive Date: 20150413
  Receipt Date: 20150413
  Transmission Date: 20150821
  Serious: Yes (Other)
  Sender: FDA-Public Use
  Company Number: None

PATIENT
  Age: 68 Year
  Sex: Female
  Weight: 130.64 kg

DRUGS (13)
  1. LEVOFLOXACIN 750MG [Suspect]
     Active Substance: LEVOFLOXACIN
     Indication: SKIN INFECTION
     Route: 048
     Dates: start: 20150327, end: 20150402
  2. LISINOPRIL. [Concomitant]
     Active Substance: LISINOPRIL
  3. LANTUS [Concomitant]
     Active Substance: INSULIN GLARGINE
  4. LEVOFLOXACIN 750MG [Suspect]
     Active Substance: LEVOFLOXACIN
     Indication: ABSCESS
     Route: 048
     Dates: start: 20150327, end: 20150402
  5. ALPRAZOLAM XR [Concomitant]
     Active Substance: ALPRAZOLAM
  6. LORATADINE. [Concomitant]
     Active Substance: LORATADINE
  7. VALACYCLOVIR [Concomitant]
     Active Substance: VALACYCLOVIR HYDROCHLORIDE
  8. FUROSEMIDE. [Concomitant]
     Active Substance: FUROSEMIDE
  9. OMEPRAZOLE. [Concomitant]
     Active Substance: OMEPRAZOLE
  10. HCTZ [Concomitant]
     Active Substance: HYDROCHLOROTHIAZIDE
  11. NOVOLOG [Concomitant]
     Active Substance: INSULIN ASPART
  12. SULFASALAZINE. [Concomitant]
     Active Substance: SULFASALAZINE
  13. MS CONTIN [Concomitant]
     Active Substance: MORPHINE SULFATE

REACTIONS (1)
  - Rhabdomyolysis [None]

NARRATIVE: CASE EVENT DATE: 20150406
